FAERS Safety Report 6033025-3 (Version None)
Quarter: 2009Q1

REPORT INFORMATION
  Report Type: 
  Country: None (occurrence: None)
  Receive Date: 20090105
  Receipt Date: 20080612
  Transmission Date: 20090719
  Serious: Yes (Other)
  Sender: FDA-Public Use
  Company Number: US-001218

PATIENT
  Sex: Female

DRUGS (3)
  1. PROHANCE [Suspect]
     Indication: HEADACHE
     Dosage: 15ML QD INTRAVENOUS
     Route: 042
     Dates: start: 20080612, end: 20080612
  2. PROHANCE [Suspect]
     Indication: NUCLEAR MAGNETIC RESONANCE IMAGING BRAIN
     Dosage: 15ML QD INTRAVENOUS
     Route: 042
     Dates: start: 20080612, end: 20080612
  3. PROHANCE [Suspect]
     Indication: VISUAL IMPAIRMENT
     Dosage: 15ML QD INTRAVENOUS
     Route: 042
     Dates: start: 20080612, end: 20080612

REACTIONS (1)
  - HYPERSENSITIVITY [None]
